FAERS Safety Report 23220653 (Version 1)
Quarter: 2023Q4

REPORT INFORMATION
  Report Type: Spontaneous
  Country: US (occurrence: US)
  Receive Date: 20231123
  Receipt Date: 20231123
  Transmission Date: 20240110
  Serious: No
  Sender: FDA-Public Use
  Company Number: US-ABBVIE-5503503

PATIENT
  Sex: Female

DRUGS (1)
  1. KADIAN [Suspect]
     Active Substance: MORPHINE SULFATE
     Indication: Product used for unknown indication
     Dosage: 10MG EXTENDED-RELEASE CAPSULES
     Route: 048

REACTIONS (2)
  - Urticaria [Unknown]
  - Haemorrhage [Unknown]
